FAERS Safety Report 18730748 (Version 2)
Quarter: 2021Q1

REPORT INFORMATION
  Report Type: Spontaneous
  Country: US (occurrence: US)
  Receive Date: 20210112
  Receipt Date: 20210212
  Transmission Date: 20210419
  Serious: Yes (Death, Hospitalization)
  Sender: FDA-Public Use
  Company Number: US-TEVA-2020-US-1865248

PATIENT
  Age: 49 Year
  Sex: Male

DRUGS (4)
  1. VALPROIC ACID. [Suspect]
     Active Substance: VALPROIC ACID
     Indication: BIPOLAR I DISORDER
     Dosage: DOSE INCREASED FROM 500MG TO 1000 MG
     Route: 065
  2. VALPROIC ACID. [Suspect]
     Active Substance: VALPROIC ACID
     Indication: BIPOLAR I DISORDER
     Route: 065
  3. L?CARNITINE [Suspect]
     Active Substance: LEVOCARNITINE
     Indication: ENCEPHALOPATHY
     Route: 065
  4. ACETYLCYSTEINE. [Suspect]
     Active Substance: ACETYLCYSTEINE
     Indication: ENCEPHALOPATHY
     Route: 065

REACTIONS (3)
  - Acute hepatic failure [Fatal]
  - Drug ineffective [Unknown]
  - Encephalopathy [Unknown]
